FAERS Safety Report 25469878 (Version 1)
Quarter: 2025Q2

REPORT INFORMATION
  Report Type: Spontaneous
  Country: TH (occurrence: TH)
  Receive Date: 20250623
  Receipt Date: 20250623
  Transmission Date: 20250717
  Serious: Yes (Hospitalization)
  Sender: BOEHRINGER INGELHEIM
  Company Number: TH-BoehringerIngelheim-2025-BI-077347

PATIENT
  Age: 68 Year
  Sex: Male

DRUGS (11)
  1. FENOTEROL\IPRATROPIUM BROMIDE [Suspect]
     Active Substance: FENOTEROL\IPRATROPIUM BROMIDE
     Indication: Product used for unknown indication
     Dates: start: 20210301
  2. FENOTEROL\IPRATROPIUM BROMIDE [Suspect]
     Active Substance: FENOTEROL\IPRATROPIUM BROMIDE
  3. TIOTROPIUM [Suspect]
     Active Substance: TIOTROPIUM
     Indication: Chronic obstructive pulmonary disease
     Dosage: 1 X 1
     Dates: start: 2024
  4. Flu/Sal [Concomitant]
     Indication: Product used for unknown indication
     Dates: start: 20210301
  5. Bud/For [Concomitant]
     Indication: Product used for unknown indication
     Dosage: 4 X 2 (4 PUFF BID)
     Dates: start: 2024
  6. Bud/For [Concomitant]
  7. Theodur (200) [Concomitant]
     Indication: Product used for unknown indication
  8. Theodur (200) [Concomitant]
  9. Theodur (200) [Concomitant]
  10. SINGULAIR [Concomitant]
     Active Substance: MONTELUKAST SODIUM
     Indication: Product used for unknown indication
     Dosage: 1 X 1
  11. SINGULAIR [Concomitant]
     Active Substance: MONTELUKAST SODIUM

REACTIONS (3)
  - Chronic obstructive pulmonary disease [Recovering/Resolving]
  - Chronic obstructive pulmonary disease [Recovered/Resolved]
  - Fatigue [Unknown]

NARRATIVE: CASE EVENT DATE: 20240101
